FAERS Safety Report 17957353 (Version 1)
Quarter: 2020Q2

REPORT INFORMATION
  Report Type: Spontaneous
  Country: US (occurrence: US)
  Receive Date: 20200629
  Receipt Date: 20200629
  Transmission Date: 20200714
  Serious: No
  Sender: FDA-Public Use
  Company Number: US-TEVA-2020-US-1462754

PATIENT
  Sex: Female

DRUGS (1)
  1. AUSTEDO [Suspect]
     Active Substance: DEUTETRABENAZINE
     Dosage: 12 MILLIGRAM DAILY; FIRST SHIPPED 11-FEB-2020
     Route: 048
     Dates: start: 2020

REACTIONS (1)
  - Tongue movement disturbance [Unknown]

NARRATIVE: CASE EVENT DATE: 2020
